FAERS Safety Report 7094499-2 (Version None)
Quarter: 2010Q4

REPORT INFORMATION
  Report Type: 
  Country: None (occurrence: None)
  Receive Date: 20101110
  Receipt Date: 20101108
  Transmission Date: 20110411
  Serious: Yes (Death)
  Sender: FDA-Public Use
  Company Number: ES-CEPHALON-2010005813

PATIENT
  Sex: Female
  Weight: 58 kg

DRUGS (1)
  1. FENTANYL CITRATE [Suspect]
     Indication: CANCER PAIN
     Route: 002

REACTIONS (1)
  - ASPIRATION BRONCHIAL [None]
